FAERS Safety Report 15520247 (Version 1)
Quarter: 2018Q4

REPORT INFORMATION
  Report Type: Spontaneous
  Country: JP (occurrence: JP)
  Receive Date: 20181017
  Receipt Date: 20181017
  Transmission Date: 20190205
  Serious: Yes (Hospitalization)
  Sender: FDA-Public Use
  Company Number: GXJP2018JP001555

PATIENT
  Age: 49 Year
  Sex: Female

DRUGS (5)
  1. ABATACEPT [Concomitant]
     Active Substance: ABATACEPT
     Indication: RHEUMATOID ARTHRITIS
     Dosage: UNK
     Route: 065
  2. PREDNISOLONE. [Interacting]
     Active Substance: PREDNISOLONE
     Dosage: 40 MG, QD
     Route: 065
  3. RIFAMPICIN CAPSULES [Suspect]
     Active Substance: RIFAMPIN
     Indication: ATYPICAL MYCOBACTERIAL INFECTION
     Dosage: UNK
     Route: 048
  4. PREDNISOLONE. [Interacting]
     Active Substance: PREDNISOLONE
     Indication: RHEUMATOID ARTHRITIS
     Dosage: 8 MG, QD
     Route: 065
  5. PREDNISOLONE. [Interacting]
     Active Substance: PREDNISOLONE
     Dosage: INCREASE FROM 80 MG/DAY TO 120 MG/DAY
     Route: 065

REACTIONS (5)
  - Oedema peripheral [Unknown]
  - Drug interaction [Unknown]
  - Nephrotic syndrome [Unknown]
  - Nasopharyngitis [Unknown]
  - Hypoalbuminaemia [Unknown]
